FAERS Safety Report 8803732 (Version 1)
Quarter: 2012Q4

REPORT INFORMATION
  Report Type: 
  Country: CN (occurrence: CN)
  Receive Date: 20120924
  Receipt Date: 20120924
  Transmission Date: 20130627
  Serious: Yes (Other)
  Sender: FDA-Public Use
  Company Number: CN-BAYER-2012-098526

PATIENT
  Age: 77 Year
  Sex: Male

DRUGS (7)
  1. AVELOX [Suspect]
     Indication: LUNG INFECTION
     Dosage: 0.4 g, QD
     Route: 048
     Dates: start: 20110202, end: 20110213
  2. CEFOPERAZONE SODIUM [Suspect]
     Indication: LUNG INFECTION
     Dosage: 2 g, BID
     Route: 042
     Dates: start: 20110125, end: 20110202
  3. TAZOBACTAM SODIUM [Suspect]
     Indication: LUNG INFECTION
     Dosage: 2 g, BID
     Route: 042
     Dates: start: 20110125, end: 20110202
  4. LEVOFLOXACIN [Suspect]
     Indication: LUNG INFECTION
     Dosage: 0.6 g, QD
     Dates: start: 20110125, end: 20110202
  5. SODIUM CHLORIDE [Suspect]
     Indication: LUNG INFECTION
     Dosage: 0.6 g, QD
     Route: 042
     Dates: start: 20110125, end: 20110202
  6. MEZLOCILLIN SODIUM [Suspect]
     Indication: LUNG INFECTION
     Dosage: 2.5 g, UNK
     Route: 042
     Dates: start: 20110207, end: 20110217
  7. SULBACTAM SODIUM [Suspect]
     Indication: LUNG INFECTION
     Dosage: 2.5 g, UNK
     Route: 042
     Dates: start: 20110207, end: 20110217

REACTIONS (1)
  - Leukoplakia oral [Recovering/Resolving]
